FAERS Safety Report 15268242 (Version 1)
Quarter: 2018Q3

REPORT INFORMATION
  Report Type: Spontaneous
  Country: US (occurrence: US)
  Receive Date: 20180725
  Receipt Date: 20180725
  Transmission Date: 20181010
  Serious: Yes (Disabling)
  Sender: FDA-Public Use
  Company Number: None

PATIENT
  Age: 28 Year
  Sex: Female
  Weight: 83.25 kg

DRUGS (2)
  1. 24 HOUR ALLERGY RELIEF NASAL [Suspect]
     Active Substance: FLUTICASONE PROPIONATE
     Indication: MULTIPLE ALLERGIES
     Dosage: ?          QUANTITY:1 SPRAY(S);?
     Route: 055
  2. OCP? KARIVA (DESOGESTREL/ETHINYL ESTRADIOL) [Concomitant]

REACTIONS (9)
  - Photophobia [None]
  - Feeling abnormal [None]
  - Muscle twitching [None]
  - Irritability [None]
  - Depression [None]
  - Headache [None]
  - Disturbance in attention [None]
  - Anxiety [None]
  - Tinnitus [None]

NARRATIVE: CASE EVENT DATE: 20180701
